FAERS Safety Report 19878631 (Version 1)
Quarter: 2021Q3

REPORT INFORMATION
  Report Type: Spontaneous
  Country: IL (occurrence: IL)
  Receive Date: 20210924
  Receipt Date: 20210924
  Transmission Date: 20211014
  Serious: Yes (Death, Hospitalization, Other)
  Sender: FDA-Public Use
  Company Number: IL-TEVA-2021-IL-1954533

PATIENT
  Age: 67 Year
  Sex: Male

DRUGS (2)
  1. CARBOPLATIN. [Suspect]
     Active Substance: CARBOPLATIN
     Route: 065
     Dates: start: 201801
  2. TAXOL [Concomitant]
     Active Substance: PACLITAXEL
     Indication: SQUAMOUS CELL CARCINOMA

REACTIONS (11)
  - Sepsis [Fatal]
  - Asthenia [Recovering/Resolving]
  - Eyelid ptosis [Recovering/Resolving]
  - Disease progression [Unknown]
  - Extraocular muscle paresis [Unknown]
  - Weight decreased [Recovering/Resolving]
  - Obstructive airways disorder [Unknown]
  - Dyspnoea [Recovering/Resolving]
  - Pneumonia bacterial [Fatal]
  - Liver function test increased [Recovering/Resolving]
  - Pulmonary mass [Unknown]

NARRATIVE: CASE EVENT DATE: 2018
